FAERS Safety Report 6669045-5 (Version None)
Quarter: 2010Q2

REPORT INFORMATION
  Report Type: 
  Country: None (occurrence: None)
  Receive Date: 20100402
  Receipt Date: 20100318
  Transmission Date: 20101027
  Serious: Yes (Other)
  Sender: FDA-Public Use
  Company Number: AUR-APL-2010-00906

PATIENT
  Age: 54 Year
  Sex: Female
  Weight: 51.7 kg

DRUGS (3)
  1. SIMVASTATIN [Suspect]
  2. VYTORIN [Suspect]
  3. ZETIA [Suspect]

REACTIONS (2)
  - BLOOD TRIGLYCERIDES INCREASED [None]
  - DRUG INEFFECTIVE [None]
